FAERS Safety Report 11630423 (Version 2)
Quarter: 2015Q4

REPORT INFORMATION
  Report Type: Spontaneous
  Country: CA (occurrence: CA)
  Receive Date: 20151014
  Receipt Date: 20151103
  Transmission Date: 20160304
  Serious: Yes (Hospitalization)
  Sender: FDA-Public Use
  Company Number: PHHY2015CA123162

PATIENT
  Age: 3 Year
  Sex: Female
  Weight: 20.41 kg

DRUGS (1)
  1. GILENYA [Suspect]
     Active Substance: FINGOLIMOD HYDROCHLORIDE
     Indication: PRODUCT USED FOR UNKNOWN INDICATION
     Dosage: 3 G (SIX CAPSULES OF GILENYA 0.5 MG), ONCE/SINGLE
     Route: 048
     Dates: start: 20151007

REACTIONS (2)
  - Accidental exposure to product by child [Recovered/Resolved]
  - Bradycardia [Recovered/Resolved]
